FAERS Safety Report 4647726-2 (Version None)
Quarter: 2005Q2

REPORT INFORMATION
  Report Type: 
  Country: None (occurrence: None)
  Receive Date: 20050426
  Receipt Date: 20050413
  Transmission Date: 20051028
  Serious: No
  Sender: FDA-Public Use
  Company Number: 05P-229-0297545-00

PATIENT
  Age: 23 Year
  Sex: Female

DRUGS (1)
  1. BIAXIN [Suspect]
     Indication: PNEUMONIA
     Dosage: 1000 MG, 1 IN 1 D, INTRAVENOUS
     Route: 042

REACTIONS (3)
  - CHEST PAIN [None]
  - INJECTION SITE INFLAMMATION [None]
  - MEDICATION ERROR [None]
